FAERS Safety Report 4390754-5 (Version None)
Quarter: 2004Q3

REPORT INFORMATION
  Report Type: 
  Country: None (occurrence: None)
  Receive Date: 20040706
  Receipt Date: 20040706
  Transmission Date: 20050211
  Serious: Yes (Hospitalization)
  Sender: FDA-Public Use
  Company Number: None

PATIENT
  Age: 72 Year
  Sex: Male
  Weight: 82.6 kg

DRUGS (9)
  1. COUMADIN [Suspect]
     Indication: ATRIAL FIBRILLATION
     Dosage: 5 MG PO
     Route: 048
  2. NORVASC [Concomitant]
  3. ATROVENT [Concomitant]
  4. COREG [Concomitant]
  5. DIGITEK [Concomitant]
  6. THEO-24 [Concomitant]
  7. PAXIL [Concomitant]
  8. PAXIL CR [Concomitant]
  9. LASIX [Concomitant]

REACTIONS (4)
  - ACCIDENT [None]
  - HAEMATOMA [None]
  - INTERNATIONAL NORMALISED RATIO INCREASED [None]
  - PETECHIAE [None]
